FAERS Safety Report 7438148-X (Version None)
Quarter: 2011Q2

REPORT INFORMATION
  Report Type: 
  Country: None (occurrence: None)
  Receive Date: 20110421
  Receipt Date: 20110421
  Transmission Date: 20111010
  Serious: No
  Sender: FDA-Public Use
  Company Number: None

PATIENT
  Age: 7 Year
  Sex: Male
  Weight: 30.8446 kg

DRUGS (1)
  1. LANSOPRAZOLE [Suspect]
     Dosage: 30MG BID PO
     Route: 048
     Dates: start: 20091101

REACTIONS (1)
  - ASTHMA [None]
